FAERS Safety Report 20210893 (Version 2)
Quarter: 2022Q3

REPORT INFORMATION
  Report Type: Report from Study
  Country: US (occurrence: US)
  Receive Date: 20211221
  Receipt Date: 20220728
  Transmission Date: 20221027
  Serious: Yes (Hospitalization)
  Sender: FDA-Public Use
  Company Number: US-TAKEDA-2021TUS080389

PATIENT
  Age: 57 Year
  Sex: Female

DRUGS (36)
  1. LANADELUMAB [Suspect]
     Active Substance: LANADELUMAB
     Indication: Hereditary angioedema
     Dosage: 300 MILLIGRAM, Q2WEEKS
     Route: 065
     Dates: start: 20190807, end: 20200923
  2. LANADELUMAB [Suspect]
     Active Substance: LANADELUMAB
     Dosage: 300 MILLIGRAM, Q4WEEKS
     Route: 065
     Dates: start: 20201006
  3. CLOBETASOL [Concomitant]
     Active Substance: CLOBETASOL
     Indication: Chronic cutaneous lupus erythematosus
     Dosage: 1 DOSAGE FORM
     Route: 061
     Dates: start: 2016
  4. DESONIDE [Concomitant]
     Active Substance: DESONIDE
     Indication: Chronic cutaneous lupus erythematosus
     Dosage: 1 DOSAGE FORM
     Route: 061
     Dates: start: 2005
  5. DOXYCYCLINE [Concomitant]
     Active Substance: DOXYCYCLINE
     Indication: Chronic cutaneous lupus erythematosus
     Dosage: 100 MILLIGRAM
     Route: 048
     Dates: start: 20190501
  6. ASPIRIN [Concomitant]
     Active Substance: ASPIRIN
     Indication: Headache
     Dosage: 325 MILLIGRAM
     Route: 048
     Dates: start: 1985
  7. ACETAMINOPHEN [Concomitant]
     Active Substance: ACETAMINOPHEN
     Indication: Headache
     Dosage: 325 MILLIGRAM
     Route: 048
     Dates: start: 1985
  8. OXYCONTIN [Concomitant]
     Active Substance: OXYCODONE HYDROCHLORIDE
     Indication: Back pain
     Dosage: 30 MILLIGRAM
     Route: 048
     Dates: start: 20170401
  9. IBUPROFEN [Concomitant]
     Active Substance: IBUPROFEN
     Indication: Headache
     Dosage: 200 MILLIGRAM
     Route: 048
     Dates: start: 20170711
  10. AMLODIPINE BESYLATE [Concomitant]
     Active Substance: AMLODIPINE BESYLATE
     Indication: Hypertension
     Dosage: 10 MILLIGRAM
     Route: 048
     Dates: start: 20180429
  11. ROSUVASTATIN CALCIUM [Concomitant]
     Active Substance: ROSUVASTATIN CALCIUM
     Indication: Dyslipidaemia
     Dosage: 20 MILLIGRAM
     Route: 048
     Dates: start: 20180621
  12. HYDROCODONE [Concomitant]
     Active Substance: HYDROCODONE
     Indication: Back pain
     Dosage: 1 DOSAGE FORM
     Route: 065
     Dates: start: 20210929
  13. TIOTROPIUM BROMIDE [Concomitant]
     Active Substance: TIOTROPIUM BROMIDE
     Indication: Chronic obstructive pulmonary disease
     Dosage: 2 DOSAGE FORM
     Route: 055
     Dates: start: 20210802
  14. MELATONIN [Concomitant]
     Active Substance: MELATONIN
     Indication: Anxiety
     Dosage: 3 MILLIGRAM
     Route: 048
     Dates: start: 20210517
  15. ATARAX [Concomitant]
     Active Substance: HYDROXYZINE HYDROCHLORIDE
     Indication: Anxiety
     Dosage: 25 MILLIGRAM
     Route: 048
     Dates: start: 20210517
  16. GABAPENTIN [Concomitant]
     Active Substance: GABAPENTIN
     Indication: Back pain
     Dosage: 100 MILLIGRAM
     Route: 048
     Dates: start: 20210506
  17. BUDESONIDE [Concomitant]
     Active Substance: BUDESONIDE
     Indication: Chronic obstructive pulmonary disease
     Dosage: 90 MICROGRAM
     Route: 055
     Dates: start: 20210517
  18. WELLBUTRIN XL [Concomitant]
     Active Substance: BUPROPION HYDROCHLORIDE
     Indication: Ex-tobacco user
     Dosage: 300 MILLIGRAM
     Route: 048
     Dates: start: 20210419
  19. OFIRMEV [Concomitant]
     Active Substance: ACETAMINOPHEN
     Indication: Analgesic therapy
     Dosage: 2000 MILLIGRAM
     Route: 042
     Dates: start: 20210422, end: 20210422
  20. TYLENOL [Concomitant]
     Active Substance: ACETAMINOPHEN
     Indication: Analgesic therapy
     Dosage: 650 MILLIGRAM
     Route: 048
     Dates: start: 20210505, end: 20210517
  21. PROVENTIL [Concomitant]
     Active Substance: ALBUTEROL
     Indication: Lung adenocarcinoma
     Dosage: 2.5 MILLIGRAM
     Route: 055
     Dates: start: 20210427, end: 20210430
  22. DUONEB [Concomitant]
     Active Substance: ALBUTEROL SULFATE\IPRATROPIUM BROMIDE
     Indication: Lung adenocarcinoma
     Dosage: 3 MILLILITER
     Route: 055
     Dates: start: 20210430, end: 20210506
  23. ALBUTEROL SULFATE [Concomitant]
     Active Substance: ALBUTEROL SULFATE
     Indication: Lung adenocarcinoma
     Dosage: 2.5 MILLIGRAM
     Route: 055
     Dates: start: 20210422, end: 20210422
  24. CATHFLO ACTIVASE [Concomitant]
     Active Substance: ALTEPLASE
     Indication: Product used for unknown indication
     Dosage: 2 MILLIGRAM
     Route: 042
     Dates: start: 20210504, end: 20210512
  25. BROVANA [Concomitant]
     Active Substance: ARFORMOTEROL TARTRATE
     Indication: Lung adenocarcinoma
     Dosage: 15 MICROGRAM
     Route: 055
     Dates: start: 20210429, end: 20210517
  26. LEXISCAN [Concomitant]
     Active Substance: REGADENOSON
     Indication: Stress
     Dosage: 0.4 MILLIGRAM
     Route: 042
     Dates: start: 20210309, end: 20210309
  27. BARIUM SULFATE [Concomitant]
     Active Substance: BARIUM SULFATE
     Indication: Scan with contrast
     Dosage: 10 MILLILITER
     Route: 048
     Dates: start: 20210504, end: 20210504
  28. DULCOLAX NOS [Concomitant]
     Active Substance: BISACODYL OR DOCUSATE SODIUM
     Indication: Faeces soft
     Dosage: 0.5 MILLIGRAM
     Route: 055
     Dates: start: 20210421, end: 20210517
  29. PULMICORT TURBUHALER [Concomitant]
     Active Substance: BUDESONIDE
     Indication: Chronic obstructive pulmonary disease
     Dosage: 0.5 MILLIGRAM
     Route: 055
     Dates: start: 20210429, end: 20210517
  30. EXPAREL [Concomitant]
     Active Substance: BUPIVACAINE
     Indication: Thyroidectomy
     Dosage: 20 MILLILITER
     Route: 058
     Dates: start: 20210421, end: 20210421
  31. MARCAINE [Concomitant]
     Active Substance: BUPIVACAINE HYDROCHLORIDE
     Indication: Thyroidectomy
     Dosage: 20 MILLILITER
     Route: 058
     Dates: start: 20210421, end: 20210421
  32. ANCEF [Concomitant]
     Active Substance: CEFAZOLIN SODIUM
     Indication: Pulmonary resection
     Dosage: 2 GRAM
     Route: 042
     Dates: start: 20210512, end: 20210512
  33. PERIDEX [Concomitant]
     Active Substance: CHLORHEXIDINE GLUCONATE
     Indication: Lung adenocarcinoma
     Dosage: 15 MILLILITER
     Route: 065
     Dates: start: 20210424, end: 20210430
  34. NIMBEX [Concomitant]
     Active Substance: CISATRACURIUM BESYLATE
     Indication: Lung adenocarcinoma
     Dosage: 100 MILLILITER
     Route: 042
     Dates: start: 20210424, end: 20210425
  35. DECADRON [Concomitant]
     Active Substance: DEXAMETHASONE
     Indication: Bone graft
     Dosage: 4 MILLIGRAM
     Route: 042
     Dates: start: 20211115, end: 20211115
  36. PRECEDEX [Concomitant]
     Active Substance: DEXMEDETOMIDINE HYDROCHLORIDE
     Indication: Sedation
     Dosage: UNK
     Route: 042
     Dates: start: 20210423, end: 20210430

REACTIONS (1)
  - Humerus fracture [Unknown]

NARRATIVE: CASE EVENT DATE: 20211028
